FAERS Safety Report 4975078-7 (Version None)
Quarter: 2006Q2

REPORT INFORMATION
  Report Type: 
  Country: None (occurrence: None)
  Receive Date: 20060418
  Receipt Date: 20060330
  Transmission Date: 20061013
  Serious: Yes (Hospitalization)
  Sender: FDA-Public Use
  Company Number: JP-ABBOTT-06P-087-0329749-00

PATIENT
  Age: 67 Year
  Sex: Male
  Weight: 61.6 kg

DRUGS (1)
  1. VALPROATE SODIUM [Suspect]
     Indication: EPILEPSY
     Dates: start: 20040401

REACTIONS (5)
  - ANAPHYLACTOID REACTION [None]
  - APLASIA PURE RED CELL [None]
  - HYPOXIA [None]
  - INCONTINENCE [None]
  - REFUSAL OF TREATMENT BY PATIENT [None]
